FAERS Safety Report 23522981 (Version 1)
Quarter: 2024Q1

REPORT INFORMATION
  Report Type: Spontaneous
  Country: CN (occurrence: CN)
  Receive Date: 20240214
  Receipt Date: 20240214
  Transmission Date: 20240410
  Serious: Yes (Other)
  Sender: FDA-Public Use
  Company Number: None

PATIENT
  Age: 22 Year
  Sex: Male
  Weight: 60 kg

DRUGS (6)
  1. CYCLOPHOSPHAMIDE [Suspect]
     Active Substance: CYCLOPHOSPHAMIDE
     Indication: Acute lymphocytic leukaemia
     Dosage: 1.5 G, QD, D1, DILUTED WITH 250 ML OF SODIUM CHLORIDE COMBINED WITH MESNA (0.6 G)
     Route: 041
     Dates: start: 20240109, end: 20240109
  2. SODIUM CHLORIDE [Suspect]
     Active Substance: SODIUM CHLORIDE
     Indication: Medication dilution
     Dosage: 250 ML, QD, D1, USED TO DILUTE WITH 1.5 G OF CYCLOPHOSPHAMIDE COMBINED WITH MESNA (0.6G)
     Route: 041
     Dates: start: 20240109, end: 20240109
  3. SODIUM CHLORIDE [Suspect]
     Active Substance: SODIUM CHLORIDE
     Dosage: 500 ML, TWICE A DAY (Q12H), MAINTAINED FOR 3H,D1-3, USED TO DILUTE 1.5G CYTARABINE
     Route: 041
     Dates: start: 20240109, end: 20240111
  4. CYTARABINE [Suspect]
     Active Substance: CYTARABINE
     Indication: Acute lymphocytic leukaemia
     Dosage: 1.5 G, TWICE A DAY (Q12H), MAINTAINED FOR 3H, D1-3, DILUTED WITH NS 500 ML
     Route: 041
     Dates: start: 20240109, end: 20240111
  5. MESNA [Suspect]
     Active Substance: MESNA
     Indication: Acute lymphocytic leukaemia
     Dosage: 0.6, QD, D1, USED TO DILUTE WITH 250 ML OF SODIUM CHLRORIDE COMBINED WITH CYCLOPHOSPHAMIDE (1.5 G)
     Route: 041
     Dates: start: 20240109, end: 20240109
  6. FLUMATINIB MESYLATE [Suspect]
     Active Substance: FLUMATINIB MESYLATE
     Indication: Acute lymphocytic leukaemia
     Dosage: 0.6 G, QD
     Route: 048
     Dates: start: 20240103, end: 20240122

REACTIONS (2)
  - Myelosuppression [Recovering/Resolving]
  - Pyrexia [Recovering/Resolving]

NARRATIVE: CASE EVENT DATE: 20240120
